FAERS Safety Report 8223667-9 (Version None)
Quarter: 2012Q1

REPORT INFORMATION
  Report Type: 
  Country: None (occurrence: None)
  Receive Date: 20120321
  Receipt Date: 20120312
  Transmission Date: 20120608
  Serious: Yes (Hospitalization)
  Sender: FDA-Public Use
  Company Number: US-BAYER-2011-077309

PATIENT
  Age: 30 Year
  Sex: Female
  Weight: 108.84 kg

DRUGS (6)
  1. DEPAKOTE [Concomitant]
     Indication: BIPOLAR DISORDER
     Dosage: 250 MG, QD
     Dates: start: 19990101
  2. RECLIPSEN [Concomitant]
  3. VALPROIC ACID [Concomitant]
     Dosage: 2 DF, HS
  4. NAPROXEN [Concomitant]
     Dosage: 500 MG, UNK
  5. YASMIN [Suspect]
     Dosage: UNK
     Dates: start: 20100301, end: 20100601
  6. CELEXA [Concomitant]
     Indication: BIPOLAR DISORDER
     Dosage: 40 MG, QD
     Dates: start: 20090101

REACTIONS (5)
  - MENTAL DISORDER [None]
  - INJURY [None]
  - DEEP VEIN THROMBOSIS [None]
  - FEAR [None]
  - PAIN [None]
